FAERS Safety Report 14124513 (Version 2)
Quarter: 2019Q1

REPORT INFORMATION
  Report Type: Spontaneous
  Country: CA (occurrence: CA)
  Receive Date: 20171025
  Receipt Date: 20190327
  Transmission Date: 20190417
  Serious: Yes (Other)
  Sender: FDA-Public Use
  Company Number: CA-PFIZER INC-2017447662

PATIENT
  Age: 33 Year
  Sex: Female

DRUGS (4)
  1. PREDNISONE. [Suspect]
     Active Substance: PREDNISONE
     Dosage: 25 MG, DAILY
  2. SERTRALINE HCL [Suspect]
     Active Substance: SERTRALINE HYDROCHLORIDE
     Dosage: 25 MG, UNK
     Dates: start: 2015
  3. AZATHIOPRINE. [Suspect]
     Active Substance: AZATHIOPRINE
     Dosage: UNK
     Dates: start: 201707
  4. PREDNISONE. [Suspect]
     Active Substance: PREDNISONE
     Dosage: BELOW 25MG DAILY

REACTIONS (4)
  - Drug dependence [Unknown]
  - Anal fistula [Unknown]
  - Colitis ulcerative [Unknown]
  - Condition aggravated [Unknown]
